FAERS Safety Report 8518718-8 (Version None)
Quarter: 2012Q3

REPORT INFORMATION
  Report Type: 
  Country: None (occurrence: None)
  Receive Date: 20120718
  Receipt Date: 20120713
  Transmission Date: 20120928
  Serious: Yes (Hospitalization, Other)
  Sender: FDA-Public Use
  Company Number: DE-ABBOTT-12P-062-0928832-00

PATIENT
  Sex: Female

DRUGS (2)
  1. HUMIRA [Suspect]
     Indication: PSORIASIS
     Route: 058
     Dates: start: 20100107
  2. HUMIRA [Suspect]
     Dates: start: 20120401

REACTIONS (3)
  - MENORRHAGIA [None]
  - GENITAL DISORDER FEMALE [None]
  - PSORIASIS [None]
